FAERS Safety Report 9682137 (Version 2)
Quarter: 2014Q1

REPORT INFORMATION
  Report Type: Report from Study
  Country: US (occurrence: GB)
  Receive Date: 20131111
  Receipt Date: 20140116
  Transmission Date: 20141002
  Serious: Yes (Other)
  Sender: FDA-Public Use
  Company Number: US-ABBVIE-13P-163-1167588-00

PATIENT
  Age: 41 Year
  Sex: Female

DRUGS (1)
  1. KALETRA [Suspect]
     Indication: ANTIRETROVIRAL THERAPY
     Dosage: 1 COURSE TAKING AT CONCEPTION
     Route: 048

REACTIONS (1)
  - Abortion spontaneous [Unknown]
